FAERS Safety Report 15748784 (Version 1)
Quarter: 2018Q4

REPORT INFORMATION
  Report Type: Spontaneous
  Country: US (occurrence: US)
  Receive Date: 20181213
  Receipt Date: 20181213
  Transmission Date: 20190205
  Serious: Yes (Hospitalization)
  Sender: FDA-Public Use
  Company Number: None

PATIENT
  Age: 58 Year
  Sex: Female

DRUGS (15)
  1. GABAPENTIN. [Concomitant]
     Active Substance: GABAPENTIN
  2. AMITRIPTYLINE [Concomitant]
     Active Substance: AMITRIPTYLINE
  3. SPIRIVA [Concomitant]
     Active Substance: TIOTROPIUM BROMIDE MONOHYDRATE
  4. SILDENAFIL 20MG [Suspect]
     Active Substance: SILDENAFIL
     Indication: PULMONARY HYPERTENSION
     Route: 048
     Dates: start: 20170926, end: 20181023
  5. DILTIAZEM. [Concomitant]
     Active Substance: DILTIAZEM
  6. VENTOLIN [Concomitant]
     Active Substance: ALBUTEROL SULFATE
  7. GLIMEPIRIDE. [Concomitant]
     Active Substance: GLIMEPIRIDE
  8. PRAVASTATIN. [Concomitant]
     Active Substance: PRAVASTATIN
  9. SYMBICORT [Concomitant]
     Active Substance: BUDESONIDE\FORMOTEROL FUMARATE DIHYDRATE
  10. FOLIC ACID. [Concomitant]
     Active Substance: FOLIC ACID
  11. CARTIA XT [Concomitant]
     Active Substance: DILTIAZEM HYDROCHLORIDE
  12. BUMETANIDE. [Concomitant]
     Active Substance: BUMETANIDE
  13. TRIAMCINOLONE [Concomitant]
     Active Substance: TRIAMCINOLONE
  14. NOVOLOG [Concomitant]
     Active Substance: INSULIN ASPART
  15. OXYCODONE [Concomitant]
     Active Substance: OXYCODONE

REACTIONS (2)
  - Localised infection [None]
  - Sepsis [None]

NARRATIVE: CASE EVENT DATE: 20181210
